FAERS Safety Report 6625327-4 (Version None)
Quarter: 2010Q1

REPORT INFORMATION
  Report Type: 
  Country: None (occurrence: None)
  Receive Date: 20100310
  Receipt Date: 20090819
  Transmission Date: 20100710
  Serious: No
  Sender: FDA-Public Use
  Company Number: US-BIOGENIDEC-2009BI026394

PATIENT
  Age: 45 Year
  Sex: Female

DRUGS (1)
  1. AVONEX [Suspect]
     Indication: MULTIPLE SCLEROSIS
     Route: 030
     Dates: start: 20090819

REACTIONS (11)
  - BALANCE DISORDER [None]
  - DIZZINESS [None]
  - DYSGEUSIA [None]
  - FEELING COLD [None]
  - GAIT DISTURBANCE [None]
  - MOUTH INJURY [None]
  - NERVOUSNESS [None]
  - PAIN [None]
  - RHINORRHOEA [None]
  - SOMNOLENCE [None]
  - TREMOR [None]
